FAERS Safety Report 8502584-0 (Version None)
Quarter: 2012Q3

REPORT INFORMATION
  Report Type: 
  Country: None (occurrence: None)
  Receive Date: 20120702
  Receipt Date: 20120622
  Transmission Date: 20120928
  Serious: Yes (Hospitalization, Other)
  Sender: FDA-Public Use
  Company Number: 1206-338

PATIENT
  Age: 77 Year
  Sex: Female
  Weight: 73.9363 kg

DRUGS (12)
  1. MAGNESIUM HYDROXIDE TAB [Concomitant]
  2. LUTEIN (XANTOFYL) [Concomitant]
  3. ASPIRIN [Concomitant]
  4. HYDROCHLOROTHIAZIDE [Concomitant]
  5. EYLEA [Suspect]
     Indication: AGE-RELATED MACULAR DEGENERATION
     Dosage: 2 MG, EVERY MONTH OR EVERY 6 WEEKS, INTRAOCULAR
     Route: 031
  6. DIOVAN [Concomitant]
  7. NICODERM [Concomitant]
  8. MEXILETINE HYDROCHLORIDE [Concomitant]
  9. FERRO SEQUEL IRON (FERRO-SEQUELS) [Concomitant]
  10. ALBUTEROL [Concomitant]
  11. COREG [Concomitant]
  12. SPIRIVA [Concomitant]

REACTIONS (2)
  - HIP FRACTURE [None]
  - BRONCHIAL HYPERREACTIVITY [None]
